FAERS Safety Report 7082307-5 (Version None)
Quarter: 2010Q4

REPORT INFORMATION
  Report Type: 
  Country: None (occurrence: None)
  Receive Date: 20101104
  Receipt Date: 20101020
  Transmission Date: 20110411
  Serious: Yes (Death, Hospitalization)
  Sender: FDA-Public Use
  Company Number: FR-RANBAXY-2010RR-39118

PATIENT
  Age: 40 Year
  Sex: Female

DRUGS (2)
  1. FLECAINIDE ACETATE [Suspect]
     Dosage: 12000 MG, UNK
     Route: 048
  2. BETAXOLOL [Suspect]
     Dosage: 400 MG, UNK
     Route: 048

REACTIONS (4)
  - BRADYCARDIA [None]
  - BRAIN DEATH [None]
  - CARDIAC ARREST [None]
  - INTENTIONAL OVERDOSE [None]
